FAERS Safety Report 7005033-7 (Version None)
Quarter: 2010Q3

REPORT INFORMATION
  Report Type: 
  Country: None (occurrence: None)
  Receive Date: 20100920
  Receipt Date: 20100920
  Transmission Date: 20110219
  Serious: Yes (Hospitalization)
  Sender: FDA-Public Use
  Company Number: None

PATIENT
  Sex: Male
  Weight: 29.4838 kg

DRUGS (1)
  1. RECLAST [Suspect]
     Indication: OSTEOPOROSIS
     Dosage: 5MG/100ML  ONE TIME IV
     Route: 042
     Dates: start: 20100915, end: 20100915

REACTIONS (3)
  - HEART RATE INCREASED [None]
  - POOR VENOUS ACCESS [None]
  - PYREXIA [None]
